FAERS Safety Report 8595590-1 (Version None)
Quarter: 2012Q3

REPORT INFORMATION
  Report Type: 
  Country: None (occurrence: None)
  Receive Date: 20120815
  Receipt Date: 20120808
  Transmission Date: 20120928
  Serious: Yes (Other)
  Sender: FDA-Public Use
  Company Number: US-FRI-1000037704

PATIENT
  Age: 49 Year
  Sex: Male

DRUGS (8)
  1. NEXIUM [Concomitant]
  2. VIIBRYD [Suspect]
     Indication: DEPRESSION
     Dosage: 10 MG
     Route: 048
     Dates: start: 20120803
  3. SINGULAIR [Concomitant]
     Indication: HYPERSENSITIVITY
  4. LISINOPRIL [Concomitant]
     Indication: HYPERTENSION
  5. VIIBRYD [Suspect]
     Indication: CRYING
  6. FLONASE [Concomitant]
     Indication: HYPERSENSITIVITY
  7. GLUCOPHAGE [Concomitant]
     Indication: DIABETES MELLITUS
  8. VIIBRYD [Suspect]
     Indication: TACHYPHRENIA

REACTIONS (1)
  - RECTAL HAEMORRHAGE [None]
